FAERS Safety Report 8968857 (Version 1)
Quarter: 2012Q4

REPORT INFORMATION
  Report Type: Report from Study
  Country: US (occurrence: US)
  Receive Date: 20121217
  Receipt Date: 20121217
  Transmission Date: 20130627
  Serious: Yes (Life-Threatening, Other)
  Sender: FDA-Public Use
  Company Number: US-ROCHE-1169120

PATIENT
  Age: 61 Year
  Sex: Male

DRUGS (1)
  1. RITUXIMAB [Suspect]
     Indication: B-CELL LYMPHOMA
     Route: 065

REACTIONS (2)
  - Pulmonary toxicity [Unknown]
  - Respiratory failure [Unknown]
